FAERS Safety Report 7865201-9 (Version None)
Quarter: 2011Q4

REPORT INFORMATION
  Report Type: 
  Country: None (occurrence: None)
  Receive Date: 20111028
  Receipt Date: 20101029
  Transmission Date: 20120403
  Serious: No
  Sender: FDA-Public Use
  Company Number: US-GLAXOSMITHKLINE-A0889721A

PATIENT
  Age: 35 Year
  Sex: Male

DRUGS (4)
  1. ADVAIR DISKUS 100/50 [Suspect]
     Dosage: 1PUFF IN THE MORNING
     Route: 055
     Dates: start: 20010101
  2. ADVAIR DISKUS 100/50 [Suspect]
     Indication: ASTHMA
     Dosage: 1PUFF IN THE MORNING
     Route: 055
     Dates: start: 20100501
  3. CRESTOR [Concomitant]
  4. AZULFIDINE [Concomitant]

REACTIONS (4)
  - EAR DISCOMFORT [None]
  - BONE DENSITY DECREASED [None]
  - ILL-DEFINED DISORDER [None]
  - WEIGHT INCREASED [None]
